FAERS Safety Report 16100947 (Version 2)
Quarter: 2019Q2

REPORT INFORMATION
  Report Type: Report from Study
  Country: US (occurrence: US)
  Receive Date: 20190321
  Receipt Date: 20190419
  Transmission Date: 20190711
  Serious: No
  Sender: FDA-Public Use
  Company Number: US-SA-2019SA073179

PATIENT
  Age: 53 Year
  Sex: Female

DRUGS (1)
  1. TERIFLUNOMIDE. [Suspect]
     Active Substance: TERIFLUNOMIDE
     Indication: MULTIPLE SCLEROSIS
     Dosage: 14 MG, QD
     Route: 048
     Dates: start: 20190302

REACTIONS (15)
  - Influenza like illness [Not Recovered/Not Resolved]
  - Infectious mononucleosis [Unknown]
  - Rash generalised [Recovering/Resolving]
  - Abdominal discomfort [Not Recovered/Not Resolved]
  - Pruritus [Not Recovered/Not Resolved]
  - Ear infection [Unknown]
  - Diarrhoea [Not Recovered/Not Resolved]
  - Nausea [Not Recovered/Not Resolved]
  - Weight decreased [Not Recovered/Not Resolved]
  - Ear pruritus [Unknown]
  - Vomiting [Recovered/Resolved]
  - Pharyngitis streptococcal [Unknown]
  - Sinusitis [Unknown]
  - Nasopharyngitis [Recovering/Resolving]
  - Malaise [Unknown]

NARRATIVE: CASE EVENT DATE: 20190302
